FAERS Safety Report 9557854 (Version 1)
Quarter: 2013Q3

REPORT INFORMATION
  Report Type: Spontaneous
  Country: US (occurrence: None)
  Receive Date: 20130726
  Receipt Date: 20130726
  Transmission Date: 20140515
  Serious: Yes (Hospitalization)
  Sender: FDA-Public Use
  Company Number: UTC-026957

PATIENT
  Age: 45 Year
  Sex: Female
  Weight: 55.8 kg

DRUGS (4)
  1. REMODULIN [Suspect]
     Dosage: 34.56 UG/KG?(0.024 UG/KG,L?IN 1 MIN),INTRAVENOUS?DRIP?
     Dates: start: 20121115
  2. REMODULIN [Suspect]
     Indication: PULMONARY ARTERIAL HYPERTENSION
     Dosage: 34.56 UG/KG?(0.024 UG/KG,L?IN 1 MIN),INTRAVENOUS?DRIP?
     Dates: start: 20121115
  3. REVATIO (SILDENAFIL CITRATE) [Concomitant]
  4. VENTAVIS (ILOPROST) [Concomitant]

REACTIONS (2)
  - Device related infection [None]
  - Pain in extremity [None]
